FAERS Safety Report 14525619 (Version 1)
Quarter: 2018Q1

REPORT INFORMATION
  Report Type: Spontaneous
  Country: US (occurrence: US)
  Receive Date: 20180213
  Receipt Date: 20180213
  Transmission Date: 20180509
  Serious: Yes (Other)
  Sender: FDA-Public Use
  Company Number: US-PFIZER INC-2018061688

PATIENT
  Age: 69 Year
  Sex: Female

DRUGS (5)
  1. CYMBALTA [Concomitant]
     Active Substance: DULOXETINE HYDROCHLORIDE
  2. CELEBREX [Suspect]
     Active Substance: CELECOXIB
     Dosage: DAILY
  3. CELEBREX [Suspect]
     Active Substance: CELECOXIB
     Dosage: RESUMED BACK TO DAILY(200MG CAPSULE BY MOUTH EVERY DAY)
     Route: 048
  4. CELEBREX [Suspect]
     Active Substance: CELECOXIB
     Indication: OSTEOPOROSIS
     Dosage: TOOK IT EVERY OTHER DAY
     Route: 048
  5. CELEBREX [Suspect]
     Active Substance: CELECOXIB
     Dosage: ALTERNATE DAY (TRIED TAKING IT EVERY OTHER DAY THIS WEEK)

REACTIONS (5)
  - Intentional product misuse [Recovered/Resolved]
  - Product use issue [Unknown]
  - Cataract [Unknown]
  - Pain [Recovered/Resolved]
  - Drug dose omission [Unknown]

NARRATIVE: CASE EVENT DATE: 20180204
